FAERS Safety Report 4672595-4 (Version None)
Quarter: 2005Q2

REPORT INFORMATION
  Report Type: 
  Country: None (occurrence: None)
  Receive Date: 20050524
  Receipt Date: 20050512
  Transmission Date: 20051028
  Serious: Yes (Life-Threatening)
  Sender: FDA-Public Use
  Company Number: FR-GLAXOSMITHKLINE-B0380719A

PATIENT
  Age: 95 Year
  Sex: Male

DRUGS (5)
  1. DEROXAT [Suspect]
     Indication: ILL-DEFINED DISORDER
     Dosage: 20MG PER DAY
     Route: 048
     Dates: start: 20050412, end: 20050418
  2. PLAVIX [Suspect]
     Indication: ILL-DEFINED DISORDER
     Dosage: 1UNIT PER DAY
     Route: 048
     Dates: end: 20050418
  3. LEVOTHYROX [Concomitant]
  4. MOPRAL [Concomitant]
  5. SERESTA [Concomitant]

REACTIONS (4)
  - ANAEMIA [None]
  - DRUG INTERACTION [None]
  - GENERAL PHYSICAL CONDITION ABNORMAL [None]
  - MELAENA [None]
